FAERS Safety Report 6390054-8 (Version None)
Quarter: 2009Q4

REPORT INFORMATION
  Report Type: 
  Country: None (occurrence: None)
  Receive Date: 20091006
  Receipt Date: 20090924
  Transmission Date: 20100525
  Serious: Yes (Death, Hospitalization, Other)
  Sender: FDA-Public Use
  Company Number: US-PFIZER INC-2008081474

PATIENT
  Sex: Female
  Weight: 67 kg

DRUGS (23)
  1. DILANTIN [Suspect]
     Indication: PARTIAL SEIZURES
     Dosage: UNK
     Route: 048
     Dates: start: 20080603, end: 20080714
  2. LEVAQUIN [Concomitant]
  3. DECADRON [Concomitant]
     Dosage: 2 MG, UNK
     Dates: start: 20080612
  4. CELEBREX [Concomitant]
  5. FOSAMAX [Concomitant]
  6. GLUCOTROL [Concomitant]
  7. PRILOSEC [Concomitant]
  8. TRICOR [Concomitant]
  9. GLUCOPHAGE [Concomitant]
  10. CYMBALTA [Concomitant]
  11. TOPROL-XL [Concomitant]
  12. ACETYLSALICYLIC ACID [Concomitant]
  13. COZAAR [Concomitant]
  14. HYDROCHLOROTHIAZIDE [Concomitant]
  15. NORVASC [Concomitant]
     Dosage: 10 MG, UNK
     Dates: start: 20080611
  16. CATAPRES [Concomitant]
     Dosage: 0.3 MG, UNK
     Dates: start: 20080611
  17. SYMBICORT [Concomitant]
  18. TUSSIONEX [Concomitant]
     Indication: COUGH
     Dosage: 5 ML,
     Dates: start: 20080611
  19. AVELOX [Concomitant]
  20. LISINOPRIL [Concomitant]
  21. FLUCONAZOLE [Concomitant]
     Dosage: 100 MG, UNK
     Dates: start: 20080623
  22. PHENYTOIN SODIUM [Concomitant]
     Dosage: 100 MG, UNK
     Dates: start: 20080611
  23. DIFLUCAN [Concomitant]

REACTIONS (3)
  - STEVENS-JOHNSON SYNDROME [None]
  - THERAPEUTIC AGENT TOXICITY [None]
  - TOXIC EPIDERMAL NECROLYSIS [None]
